FAERS Safety Report 17991676 (Version 1)
Quarter: 2020Q3

REPORT INFORMATION
  Report Type: Spontaneous
  Country: US (occurrence: US)
  Receive Date: 20200707
  Receipt Date: 20200707
  Transmission Date: 20201103
  Serious: Yes (Hospitalization)
  Sender: FDA-Public Use
  Company Number: US-FRESENIUS MEDICAL CARE RENAL THERAPIES GROUP-FMC-2007-000741

PATIENT
  Age: 79 Year
  Sex: Female
  Weight: 66 kg

DRUGS (1)
  1. DELFLEX WITH DEXTROSE 1.5% LOW MAGNESIUM LOW CALCIUM [Suspect]
     Active Substance: CALCIUM CHLORIDE\DEXTROSE\MAGNESIUM CHLORIDE\SODIUM CHLORIDE\SODIUM LACTATE
     Indication: END STAGE RENAL DISEASE
     Dosage: 2200ML FOR 5 CYCLES WITH NO LAST FILL AND NO DAYTIME EXCHANGE
     Route: 033

REACTIONS (2)
  - Myocardial infarction [Recovering/Resolving]
  - Fluid retention [Recovering/Resolving]
